FAERS Safety Report 16845261 (Version 1)
Quarter: 2019Q3

REPORT INFORMATION
  Report Type: Other
  Country: CA (occurrence: CA)
  Receive Date: 20190924
  Receipt Date: 20190924
  Transmission Date: 20191005
  Serious: Yes (Other)
  Sender: FDA-Public Use
  Company Number: CA-APOTEX-2019AP022200

PATIENT
  Age: 42 Year
  Sex: Female
  Weight: 54.88 kg

DRUGS (1)
  1. APO-TAMOX [Suspect]
     Active Substance: TAMOXIFEN
     Indication: BREAST CANCER
     Dosage: 20 MG, QD
     Route: 048

REACTIONS (14)
  - Crying [Unknown]
  - Impaired driving ability [Unknown]
  - Vaginal discharge [Unknown]
  - Depression [Unknown]
  - Headache [Unknown]
  - Palpitations [Unknown]
  - Vitreous detachment [Unknown]
  - Fatigue [Unknown]
  - Disturbance in attention [Unknown]
  - Visual acuity reduced [Unknown]
  - Dizziness [Unknown]
  - Hot flush [Unknown]
  - Visual impairment [Unknown]
  - Thirst [Unknown]
